FAERS Safety Report 23937567 (Version 1)
Quarter: 2024Q2

REPORT INFORMATION
  Report Type: Spontaneous
  Country: DE (occurrence: DE)
  Receive Date: 20240604
  Receipt Date: 20240604
  Transmission Date: 20240716
  Serious: Yes (Other)
  Sender: FDA-Public Use
  Company Number: DE-BAYER-2024A079704

PATIENT
  Age: 82 Year
  Sex: Male

DRUGS (2)
  1. EYLEA HD [Suspect]
     Active Substance: AFLIBERCEPT
     Indication: Neovascular age-related macular degeneration
     Dosage: UNK, SOLUTION FOR INJECTION, 114.3  MG/ML
     Dates: start: 202405
  2. CORTISONE [Concomitant]
     Active Substance: CORTISONE
     Indication: Rheumatic disorder
     Dosage: 8 MG, RIGNT EYE

REACTIONS (3)
  - Macular telangiectasia [Unknown]
  - Macular oedema [Unknown]
  - Visual impairment [Unknown]
